FAERS Safety Report 25300675 (Version 1)
Quarter: 2025Q2

REPORT INFORMATION
  Report Type: Spontaneous
  Country: US (occurrence: None)
  Receive Date: 20250509
  Receipt Date: 20250509
  Transmission Date: 20250716
  Serious: Yes (Hospitalization)
  Sender: FDA-CTU
  Company Number: None

PATIENT
  Age: 38 Year
  Sex: Female
  Weight: 81.9 kg

DRUGS (1)
  1. HUMIRA [Suspect]
     Active Substance: ADALIMUMAB
     Route: 058
     Dates: start: 20230313, end: 20250305

REACTIONS (3)
  - Pneumonia [None]
  - Histoplasmosis disseminated [None]
  - Thrombocytopenia [None]

NARRATIVE: CASE EVENT DATE: 20250305
